FAERS Safety Report 5676062-0 (Version None)
Quarter: 2008Q1

REPORT INFORMATION
  Report Type: 
  Country: None (occurrence: None)
  Receive Date: 20080321
  Receipt Date: 20080314
  Transmission Date: 20080703
  Serious: Yes (Hospitalization)
  Sender: FDA-Public Use
  Company Number: JP-ROCHE-543874

PATIENT
  Age: 46 Year
  Sex: Male
  Weight: 77.8 kg

DRUGS (7)
  1. CAPECITABINE [Suspect]
     Indication: GASTRIC CANCER
     Dosage: FREQUENCY REPORTED AS D1-14Q3W. DATE OF LAST DOSE PRIOR TO SAE 22 JAN 2008.
     Route: 048
     Dates: start: 20071217, end: 20080122
  2. BLINDED BEVACIZUMAB [Suspect]
     Indication: GASTRIC CANCER
     Dosage: FREQUENCY REPORTED AS D1Q3W. DOSAGE FORM REPORTED AS INFUSION. DATE OF LAST DOSE PRIOR TO SAE 08 JA+
     Route: 042
     Dates: start: 20071217, end: 20080108
  3. CISPLATIN [Suspect]
     Indication: GASTRIC CANCER
     Dosage: FREQUENCY REPORTED AS D1Q3W. DOSAGE FORM REPORTED AS INFUSION. DATE OF LAST DOSE PRIOR TO SAE 08 JA+
     Route: 042
     Dates: start: 20071217, end: 20080108
  4. LOXOPROFEN SODIUM [Suspect]
     Indication: CANCER PAIN
     Route: 065
     Dates: start: 20071215, end: 20080129
  5. BENIDIPINE HYDROCHLORIDE [Concomitant]
     Dates: start: 20071219
  6. VALSARTAN [Concomitant]
     Dates: start: 20071225
  7. NERIPROCT [Concomitant]
     Dates: start: 20080107

REACTIONS (3)
  - GASTRIC PERFORATION [None]
  - PERITONITIS [None]
  - TUMOUR NECROSIS [None]
